FAERS Safety Report 21974317 (Version 1)
Quarter: 2023Q1

REPORT INFORMATION
  Report Type: Spontaneous
  Country: ES (occurrence: ES)
  Receive Date: 20230209
  Receipt Date: 20230209
  Transmission Date: 20230417
  Serious: Yes (Disabling, Other)
  Sender: FDA-Public Use
  Company Number: None

PATIENT
  Sex: Female
  Weight: 53 kg

DRUGS (2)
  1. NEOTIGASON [Suspect]
     Active Substance: ACITRETIN
     Indication: Lichen planus
     Dosage: 25 MILLIGRAM DAILY; 25 MG EVERY OTHER DAY FOR 3 WEEKS, 25 MG/DAY FOR 1 MONTH, 10 MG/DAY FOR 1 MONTH
     Dates: start: 20220902, end: 20221026
  2. NEOTIGASON [Suspect]
     Active Substance: ACITRETIN
     Indication: Lichen planus
     Dosage: 10 MILLIGRAM DAILY; 10 MG / DAY FOR 1 MONTH
     Dates: start: 20221026, end: 20221124

REACTIONS (4)
  - Atrophic vulvovaginitis [Not Recovered/Not Resolved]
  - Condition aggravated [Not Recovered/Not Resolved]
  - Vulvovaginal pain [Not Recovered/Not Resolved]
  - Vulvovaginal candidiasis [Recovered/Resolved]

NARRATIVE: CASE EVENT DATE: 20221104
